FAERS Safety Report 23772475 (Version 1)
Quarter: 2024Q2

REPORT INFORMATION
  Report Type: Spontaneous
  Country: IT (occurrence: IT)
  Receive Date: 20240423
  Receipt Date: 20240423
  Transmission Date: 20240716
  Serious: Yes (Hospitalization)
  Sender: FDA-Public Use
  Company Number: None

PATIENT
  Age: 70 Year
  Sex: Male
  Weight: 78 kg

DRUGS (8)
  1. FLUOROURACIL [Suspect]
     Active Substance: FLUOROURACIL
     Indication: Adenocarcinoma of colon
     Dosage: 3200 MG./M2 IN CONTINUOUS INFUSION FOR 46 HOURS (2.5 ML/H) EVERY 14 DAYS
     Dates: start: 20240301, end: 20240303
  2. AMLODIPINE [Concomitant]
     Active Substance: AMLODIPINE BESYLATE
     Dosage: 5 MG 1/DAY
  3. RAMIPRIL [Concomitant]
     Active Substance: RAMIPRIL
     Dosage: 5 MG 1/DAY
  4. IRINOTECAN [Concomitant]
     Active Substance: IRINOTECAN
     Dosage: 165 MG/MQ Q2W
     Dates: start: 20240301, end: 20240301
  5. ESOMEPRAZOLE [Concomitant]
     Active Substance: ESOMEPRAZOLE
  6. ROSUVASTATIN [Concomitant]
     Active Substance: ROSUVASTATIN
     Dosage: OR 5 MG 1/DAY
  7. LEUCOVORIN CALCIUM [Concomitant]
     Active Substance: LEUCOVORIN CALCIUM
     Dosage: 200 MG/M2 Q2W
     Dates: start: 20240301, end: 20240301
  8. OXALIPLATIN [Concomitant]
     Active Substance: OXALIPLATIN
     Dosage: 85 MG/M2 Q2W
     Dates: start: 20240301, end: 20240301

REACTIONS (2)
  - Arteriospasm coronary [Recovered/Resolved]
  - Chest pain [Recovered/Resolved]

NARRATIVE: CASE EVENT DATE: 20240303
